FAERS Safety Report 9907137 (Version 1)
Quarter: 2014Q1

REPORT INFORMATION
  Report Type: Spontaneous
  Country: CA (occurrence: CA)
  Receive Date: 20140218
  Receipt Date: 20140218
  Transmission Date: 20141002
  Serious: Yes (Other)
  Sender: FDA-Public Use
  Company Number: CA-B.I. PHARMACEUTICALS,INC./RIDGEFIELD-2014-BI-06353CN

PATIENT
  Age: 74 Year
  Sex: Female

DRUGS (5)
  1. SPIRIVA [Suspect]
     Indication: PRODUCT USED FOR UNKNOWN INDICATION
     Dosage: DOSE OF ONE APPLICATION: 1DF ONCE A DAY
     Route: 048
  2. LIPIDIL EZ [Concomitant]
     Route: 065
  3. PANTOLOC [Concomitant]
     Route: 065
  4. RAMIPRIL [Concomitant]
     Route: 065
  5. TIAZAC XC [Concomitant]
     Route: 065

REACTIONS (3)
  - Blood pressure increased [Recovered/Resolved]
  - Cough [Recovered/Resolved]
  - Urticaria [Recovered/Resolved]
